FAERS Safety Report 18551021 (Version 1)
Quarter: 2020Q4

REPORT INFORMATION
  Report Type: Spontaneous
  Country: US (occurrence: US)
  Receive Date: 20201126
  Receipt Date: 20201126
  Transmission Date: 20210114
  Serious: Yes (Other)
  Sender: FDA-Public Use
  Company Number: US-PURDUE-USA-2020-0177578

PATIENT
  Sex: Female

DRUGS (1)
  1. HYDROCODONE BITARTRATE (SIMILAR TO NDA 206627) [Suspect]
     Active Substance: HYDROCODONE BITARTRATE
     Indication: ANALGESIC THERAPY
     Dosage: 5 MG, Q6H
     Route: 048
     Dates: start: 201103, end: 201405

REACTIONS (13)
  - Blood pressure increased [Not Recovered/Not Resolved]
  - Drug withdrawal syndrome [Unknown]
  - Disturbance in attention [Not Recovered/Not Resolved]
  - Amnesia [Not Recovered/Not Resolved]
  - Fear [Not Recovered/Not Resolved]
  - Nightmare [Not Recovered/Not Resolved]
  - Anxiety [Not Recovered/Not Resolved]
  - Unevaluable event [Unknown]
  - Pain [Unknown]
  - Drug dependence [Unknown]
  - Emotional distress [Unknown]
  - Overdose [Unknown]
  - Myocardial infarction [Not Recovered/Not Resolved]
